FAERS Safety Report 8118326-7 (Version None)
Quarter: 2012Q1

REPORT INFORMATION
  Report Type: 
  Country: None (occurrence: None)
  Receive Date: 20120207
  Receipt Date: 20120131
  Transmission Date: 20120608
  Serious: Yes (Death, Hospitalization, Other)
  Sender: FDA-Public Use
  Company Number: CL-PFIZER INC-2012028013

PATIENT
  Age: 43 Year
  Sex: Female

DRUGS (2)
  1. VORICONAZOLE [Suspect]
     Dosage: 200 MG, 1X/DAY
     Dates: start: 20110101
  2. GLEEVEC [Suspect]
     Dosage: 600 MG, 1X/DAY

REACTIONS (8)
  - FEBRILE NEUTROPENIA [None]
  - ASPERGILLOSIS [None]
  - PANCYTOPENIA [None]
  - PYREXIA [None]
  - APLASIA [None]
  - CHILLS [None]
  - SEPTIC SHOCK [None]
  - DIARRHOEA [None]
